FAERS Safety Report 8539894 (Version 2)
Quarter: 2012Q4

REPORT INFORMATION
  Report Type: 
  Country: US (occurrence: US)
  Receive Date: 20120502
  Receipt Date: 20121107
  Transmission Date: 20130627
  Serious: No
  Sender: FDA-Public Use
  Company Number: US-PFIZER INC-2012105279

PATIENT
  Age: 51 Year
  Sex: Female
  Weight: 98.41 kg

DRUGS (17)
  1. PREMARIN [Suspect]
     Indication: HORMONE REPLACEMENT THERAPY
     Dosage: 0.9 mg, 1x/day
     Route: 048
     Dates: start: 199810
  2. PREMARIN [Suspect]
     Indication: HOT FLASHES
  3. PREMARIN [Suspect]
     Indication: POSTOPERATIVE CARE
  4. WELLBUTRIN [Concomitant]
     Dosage: UNK
  5. WELLBUTRIN [Concomitant]
     Dosage: UNK
  6. PROTONIX [Concomitant]
     Dosage: UNK
  7. PROTONIX [Concomitant]
     Dosage: UNK
  8. MAXZIDE [Concomitant]
     Dosage: UNK
  9. SEROQUEL [Concomitant]
     Dosage: UNK
  10. SEROQUEL [Concomitant]
     Dosage: UNK
  11. KLONOPIN [Concomitant]
     Dosage: UNK
  12. KLONOPIN [Concomitant]
     Dosage: UNK
  13. XANAX [Concomitant]
     Dosage: UNK
  14. XANAX [Concomitant]
     Dosage: UNK
  15. TRIAMTERENE/HYDROCHLOROTHIAZIDE [Concomitant]
     Dosage: UNK
  16. AMBIEN CR [Concomitant]
     Dosage: UNK
  17. CLONIDINE [Concomitant]
     Dosage: UNK

REACTIONS (5)
  - Expired drug administered [Unknown]
  - Hot flush [Unknown]
  - Depression [Not Recovered/Not Resolved]
  - Anxiety [Not Recovered/Not Resolved]
  - Arthropathy [Unknown]
